FAERS Safety Report 22681007 (Version 4)
Quarter: 2023Q4

REPORT INFORMATION
  Report Type: Report from Study
  Country: MX (occurrence: MX)
  Receive Date: 20230707
  Receipt Date: 20231109
  Transmission Date: 20240109
  Serious: Yes (Other)
  Sender: FDA-Public Use
  Company Number: MX-002147023-NVSC2023MX151854

PATIENT
  Age: 33 Year
  Sex: Male

DRUGS (2)
  1. GILENYA [Suspect]
     Active Substance: FINGOLIMOD HYDROCHLORIDE
     Indication: Multiple sclerosis
     Dosage: 0.5 MG, QD
     Route: 048
     Dates: start: 20220504
  2. GILENYA [Suspect]
     Active Substance: FINGOLIMOD HYDROCHLORIDE
     Dosage: 0.5 MG, QD (ONCE)
     Route: 048
     Dates: start: 20230301

REACTIONS (11)
  - Optic neuritis [Unknown]
  - Multiple sclerosis relapse [Not Recovered/Not Resolved]
  - Secondary progressive multiple sclerosis [Unknown]
  - Blindness unilateral [Not Recovered/Not Resolved]
  - Memory impairment [Not Recovered/Not Resolved]
  - Pain [Not Recovered/Not Resolved]
  - Paraesthesia [Not Recovered/Not Resolved]
  - Balance disorder [Not Recovered/Not Resolved]
  - Gait disturbance [Not Recovered/Not Resolved]
  - Hepatic function abnormal [Unknown]
  - Dizziness [Not Recovered/Not Resolved]

NARRATIVE: CASE EVENT DATE: 20230501
